FAERS Safety Report 25523946 (Version 1)
Quarter: 2025Q3

REPORT INFORMATION
  Report Type: Spontaneous
  Country: US (occurrence: None)
  Receive Date: 20250703
  Receipt Date: 20250703
  Transmission Date: 20251021
  Serious: Yes (Life-Threatening, Hospitalization, Disabling, Other)
  Sender: FDA-CTU
  Company Number: None

PATIENT
  Age: 20 Year
  Sex: Male

DRUGS (5)
  1. FINASTERIDE\MINOXIDIL [Suspect]
     Active Substance: FINASTERIDE\MINOXIDIL
     Indication: Alopecia
     Dosage: FREQUENCY : DAILY;?
     Route: 048
  2. BIOTIN [Concomitant]
     Active Substance: BIOTIN
  3. PANTOTHENIC ACID [Concomitant]
     Active Substance: PANTOTHENIC ACID
  4. VITAMIN B6 [Concomitant]
     Active Substance: PYRIDOXINE HYDROCHLORIDE
  5. VITAMIN C [Concomitant]
     Active Substance: ASCORBIC ACID

REACTIONS (5)
  - Suicidal ideation [None]
  - Mental disorder [None]
  - Impaired work ability [None]
  - Erectile dysfunction [None]
  - Neurosis [None]

NARRATIVE: CASE EVENT DATE: 20250619
